FAERS Safety Report 8415266-0 (Version None)
Quarter: 2012Q2

REPORT INFORMATION
  Report Type: 
  Country: None (occurrence: None)
  Receive Date: 20120530
  Receipt Date: 20120215
  Transmission Date: 20120825
  Serious: Yes (Hospitalization)
  Sender: FDA-Public Use
  Company Number: 2012-00223

PATIENT
  Age: 39 Year
  Sex: Female

DRUGS (1)
  1. SUPRAX [Suspect]
     Indication: OTITIS MEDIA
     Dosage: 400 MG (400 MG, 1 IN 1 D), PER ORAL
     Route: 048
     Dates: start: 20111222, end: 20120109

REACTIONS (5)
  - URTICARIA [None]
  - ARTHRALGIA [None]
  - PRURITUS [None]
  - SERUM SICKNESS [None]
  - NO THERAPEUTIC RESPONSE [None]
